FAERS Safety Report 4615142-5 (Version None)
Quarter: 2005Q1

REPORT INFORMATION
  Report Type: 
  Country: None (occurrence: None)
  Receive Date: 20050322
  Receipt Date: 20050318
  Transmission Date: 20050727
  Serious: Yes (Hospitalization)
  Sender: FDA-Public Use
  Company Number: US-GLAXOSMITHKLINE-A0550434A

PATIENT
  Age: 53 Year
  Sex: Female

DRUGS (11)
  1. ESKALITH CR [Suspect]
     Indication: BIPOLAR DISORDER
     Dosage: 900MG TWICE PER DAY
     Route: 048
     Dates: start: 20050303, end: 20050301
  2. LITHIUM [Suspect]
     Indication: BIPOLAR DISORDER
     Dosage: 900MG TWICE PER DAY
     Route: 048
     Dates: end: 20050303
  3. GLUCOPHAGE [Concomitant]
     Indication: DRUG USE FOR UNKNOWN INDICATION
  4. GLIPIZIDE [Concomitant]
     Indication: DRUG USE FOR UNKNOWN INDICATION
  5. EFFEXOR [Concomitant]
     Indication: DRUG USE FOR UNKNOWN INDICATION
  6. RISPERDAL [Concomitant]
     Indication: DRUG USE FOR UNKNOWN INDICATION
  7. SYNTHROID [Concomitant]
     Indication: DRUG USE FOR UNKNOWN INDICATION
  8. ALLEGRA [Concomitant]
     Indication: DRUG USE FOR UNKNOWN INDICATION
  9. DESYREL [Concomitant]
     Indication: DRUG USE FOR UNKNOWN INDICATION
  10. NADOLOL [Concomitant]
     Indication: DRUG USE FOR UNKNOWN INDICATION
  11. PRINIVIL [Concomitant]
     Indication: DRUG USE FOR UNKNOWN INDICATION
     Dates: start: 20050305

REACTIONS (5)
  - DEPRESSED LEVEL OF CONSCIOUSNESS [None]
  - DRUG LEVEL INCREASED [None]
  - HYPOGLYCAEMIA [None]
  - MENTAL STATUS CHANGES [None]
  - URINARY TRACT INFECTION [None]
